FAERS Safety Report 4474586-5 (Version None)
Quarter: 2004Q4

REPORT INFORMATION
  Report Type: 
  Country: None (occurrence: None)
  Receive Date: 20041014
  Receipt Date: 20041011
  Transmission Date: 20050328
  Serious: Yes (Death)
  Sender: FDA-Public Use
  Company Number: PHFR2004GB03784

PATIENT
  Age: 66 Year
  Sex: 0

DRUGS (12)
  1. ZOMETA [Suspect]
     Indication: BONE DISORDER
     Dosage: 4MG/DAY
     Route: 042
     Dates: start: 20040611, end: 20040611
  2. ZOMETA [Suspect]
     Dosage: 4MG/DAY
     Route: 042
     Dates: start: 20040713, end: 20040713
  3. CALCIUM [Concomitant]
     Route: 065
  4. FENTANYL [Concomitant]
     Route: 065
  5. SALBUTAMOL [Concomitant]
     Route: 065
  6. AMITRIPTYLINE HCL [Concomitant]
     Route: 065
  7. FRUSEMIDE [Concomitant]
     Route: 065
  8. FLUOXETINE [Concomitant]
     Route: 065
  9. ISMN ^GENERICON^ [Concomitant]
     Route: 065
  10. ENALAPRIL MALEATE [Concomitant]
     Route: 065
  11. DILTIAZEM [Concomitant]
     Route: 065
  12. COMBIVENT [Concomitant]
     Route: 065

REACTIONS (1)
  - RENAL FAILURE ACUTE [None]
